FAERS Safety Report 10572681 (Version 1)
Quarter: 2014Q4

REPORT INFORMATION
  Report Type: Spontaneous
  Country: GB (occurrence: GB)
  Receive Date: 20141110
  Receipt Date: 20141110
  Transmission Date: 20150529
  Serious: Yes (Death)
  Sender: FDA-Public Use
  Company Number: GB-ROCHE-1488257

PATIENT
  Age: 51 Year
  Sex: Female

DRUGS (15)
  1. XOLAIR [Suspect]
     Active Substance: OMALIZUMAB
     Dosage: LAST DOSE RECEIVED ON 01/JUL/2014.
     Route: 058
  2. TERBUTALINE [Concomitant]
     Active Substance: TERBUTALINE
  3. FOLIC ACID. [Concomitant]
     Active Substance: FOLIC ACID
  4. LACTULOSE. [Concomitant]
     Active Substance: LACTULOSE
     Route: 065
  5. ORAMORPH SR SUSTAINED RELEASE [Concomitant]
     Active Substance: MORPHINE SULFATE
  6. PREGABALIN. [Concomitant]
     Active Substance: PREGABALIN
  7. DEXAMETHASONE. [Concomitant]
     Active Substance: DEXAMETHASONE
  8. SYMBICORT [Concomitant]
     Active Substance: BUDESONIDE\FORMOTEROL FUMARATE DIHYDRATE
  9. LANSOPRAZOLE. [Concomitant]
     Active Substance: LANSOPRAZOLE
  10. XOLAIR [Suspect]
     Active Substance: OMALIZUMAB
     Indication: ASTHMA
     Route: 058
  11. DOCUSATE [Concomitant]
     Active Substance: DOCUSATE
  12. PARACETAMOL [Concomitant]
     Active Substance: ACETAMINOPHEN
  13. CYCLIZINE [Concomitant]
     Active Substance: CYCLIZINE
  14. SENNA [Concomitant]
     Active Substance: SENNA LEAF\SENNOSIDES\SENNOSIDES A AND B
  15. ZOMORPH [Concomitant]
     Active Substance: MORPHINE SULFATE

REACTIONS (2)
  - Adenocarcinoma [Fatal]
  - Brain neoplasm [Fatal]

NARRATIVE: CASE EVENT DATE: 20131126
